FAERS Safety Report 6095563-7 (Version None)
Quarter: 2009Q1

REPORT INFORMATION
  Report Type: 
  Country: None (occurrence: None)
  Receive Date: 20090227
  Receipt Date: 20080425
  Transmission Date: 20090719
  Serious: No
  Sender: FDA-Public Use
  Company Number: A0724857A

PATIENT
  Age: 50 Year
  Sex: Female

DRUGS (1)
  1. LAMICTAL [Suspect]
     Indication: EPILEPSY
     Route: 048
     Dates: start: 19980101, end: 20060101

REACTIONS (7)
  - ALOPECIA [None]
  - HAIR TEXTURE ABNORMAL [None]
  - ILL-DEFINED DISORDER [None]
  - LOCAL SWELLING [None]
  - PAIN OF SKIN [None]
  - RASH [None]
  - SKIN DISORDER [None]
